FAERS Safety Report 5226384-2 (Version None)
Quarter: 2007Q1

REPORT INFORMATION
  Report Type: 
  Country: None (occurrence: None)
  Receive Date: 20070201
  Receipt Date: 20070117
  Transmission Date: 20070707
  Serious: Yes (Hospitalization)
  Sender: FDA-Public Use
  Company Number: US-BRISTOL-MYERS SQUIBB COMPANY-13655709

PATIENT

DRUGS (1)
  1. WARFARIN SODIUM [Suspect]

REACTIONS (1)
  - HOSPITALISATION [None]
